FAERS Safety Report 5304833-9 (Version None)
Quarter: 2007Q2

REPORT INFORMATION
  Report Type: 
  Country: None (occurrence: None)
  Receive Date: 20070423
  Receipt Date: 20070221
  Transmission Date: 20071010
  Serious: Yes (Hospitalization)
  Sender: FDA-Public Use
  Company Number: JP-BOEHRINGER INGELHEIM PHARMACEUTICALS, INC.-2007-BP-01271NB

PATIENT
  Sex: Female
  Weight: 43.8 kg

DRUGS (12)
  1. MEXITIL [Suspect]
     Indication: ARRHYTHMIA
     Route: 048
     Dates: start: 20070117, end: 20070123
  2. MEXIBAL [Suspect]
     Indication: ARRHYTHMIA
     Route: 048
     Dates: end: 20070117
  3. SULBACSIN [Suspect]
     Indication: PNEUMONIA
     Route: 042
     Dates: start: 20070116, end: 20070118
  4. VOLTAREN [Suspect]
     Indication: PYREXIA
     Route: 054
     Dates: start: 20070115, end: 20070115
  5. ELPACIN [Suspect]
     Indication: PNEUMONIA
     Route: 042
     Dates: start: 20070119, end: 20070122
  6. LIPITOR [Concomitant]
     Indication: HYPERLIPIDAEMIA
     Route: 048
     Dates: start: 20030330
  7. ONEALFA [Concomitant]
     Indication: OSTEOPOROSIS
     Route: 048
     Dates: start: 20030330
  8. SENNOSIDE [Concomitant]
     Indication: CONSTIPATION
     Route: 048
     Dates: start: 20030330
  9. TSUKUSHI AM [Concomitant]
     Route: 048
     Dates: start: 20030330
  10. GLAKAY [Concomitant]
     Route: 048
     Dates: start: 20030330
  11. MYSLEE [Concomitant]
     Route: 048
  12. BUSCOPAN [Concomitant]
     Indication: ABDOMINAL PAIN
     Route: 048
     Dates: start: 20070115, end: 20070115

REACTIONS (2)
  - ERYTHEMA [None]
  - RASH [None]
